FAERS Safety Report 7879546-X (Version None)
Quarter: 2011Q4

REPORT INFORMATION
  Report Type: 
  Country: None (occurrence: None)
  Receive Date: 20111101
  Receipt Date: 20111019
  Transmission Date: 20120403
  Serious: Yes (Hospitalization)
  Sender: FDA-Public Use
  Company Number: US-GLAXOSMITHKLINE-A0887446A

PATIENT
  Age: 51 Year
  Sex: Female
  Weight: 121.4 kg

DRUGS (7)
  1. LIPITOR [Concomitant]
  2. AMARYL [Concomitant]
  3. ACCUPRIL [Concomitant]
  4. PREMARIN [Concomitant]
  5. AVANDIA [Suspect]
     Indication: DIABETES MELLITUS
     Dosage: 4MG TWICE PER DAY
     Route: 048
     Dates: start: 19990812, end: 20070101
  6. GLUCOPHAGE [Concomitant]
  7. TOPROL-XL [Concomitant]

REACTIONS (3)
  - CARDIAC FAILURE CONGESTIVE [None]
  - EMBOLIC STROKE [None]
  - MYOCARDIAL INFARCTION [None]
